FAERS Safety Report 6817751-1 (Version None)
Quarter: 2010Q3

REPORT INFORMATION
  Report Type: 
  Country: None (occurrence: None)
  Receive Date: 20100706
  Receipt Date: 20100604
  Transmission Date: 20110219
  Serious: No
  Sender: FDA-Public Use
  Company Number: US-BAYER-201016530BCC

PATIENT
  Age: 57 Year
  Sex: Male
  Weight: 145 kg

DRUGS (2)
  1. ALEVE [Suspect]
     Indication: PAIN
     Dosage: AS USED: 880 MG  UNIT DOSE: 220 MG
     Route: 048
  2. AMBIEN [Concomitant]

REACTIONS (1)
  - NO ADVERSE EVENT [None]
